FAERS Safety Report 13095815 (Version 1)
Quarter: 2017Q1

REPORT INFORMATION
  Report Type: Spontaneous
  Country: US (occurrence: US)
  Receive Date: 20170109
  Receipt Date: 20170109
  Transmission Date: 20170428
  Serious: Yes (Hospitalization)
  Sender: FDA-Public Use
  Company Number: US-ROCHE-1875817

PATIENT
  Age: 48 Year
  Sex: Female

DRUGS (8)
  1. CARBOPLATIN. [Concomitant]
     Active Substance: CARBOPLATIN
     Dosage: AUC6
     Route: 065
     Dates: start: 20161022
  2. PERJETA [Suspect]
     Active Substance: PERTUZUMAB
     Indication: BREAST CANCER METASTATIC
     Route: 065
     Dates: start: 20160922
  3. TAXOTERE [Concomitant]
     Active Substance: DOCETAXEL
     Indication: BREAST CANCER METASTATIC
     Route: 065
     Dates: start: 20161022
  4. HERCEPTIN [Suspect]
     Active Substance: TRASTUZUMAB
     Indication: BREAST CANCER METASTATIC
     Route: 065
     Dates: start: 20160922
  5. HERCEPTIN [Suspect]
     Active Substance: TRASTUZUMAB
     Route: 065
     Dates: start: 20161022, end: 201612
  6. PERJETA [Suspect]
     Active Substance: PERTUZUMAB
     Route: 065
     Dates: start: 20161022
  7. CARBOPLATIN. [Concomitant]
     Active Substance: CARBOPLATIN
     Indication: BREAST CANCER METASTATIC
     Route: 065
     Dates: start: 20160922
  8. DOCETAXEL. [Concomitant]
     Active Substance: DOCETAXEL
     Indication: BREAST CANCER METASTATIC
     Route: 065
     Dates: start: 20160922

REACTIONS (9)
  - Liver disorder [Unknown]
  - Oedema [Unknown]
  - Dehydration [Recovered/Resolved]
  - Ascites [Unknown]
  - Mucosal inflammation [Unknown]
  - Diarrhoea [Recovered/Resolved]
  - Hepatic atrophy [Unknown]
  - Dermatitis acneiform [Unknown]
  - Hepatic cirrhosis [Not Recovered/Not Resolved]

NARRATIVE: CASE EVENT DATE: 20161005
